FAERS Safety Report 5754340-4 (Version None)
Quarter: 2008Q2

REPORT INFORMATION
  Report Type: 
  Country: None (occurrence: None)
  Receive Date: 20080530
  Receipt Date: 20080519
  Transmission Date: 20081010
  Serious: Yes (Other)
  Sender: FDA-Public Use
  Company Number: DE-PFIZER INC-2008008882

PATIENT
  Sex: Female
  Weight: 95 kg

DRUGS (2)
  1. CHANTIX [Suspect]
     Indication: SMOKING CESSATION THERAPY
     Route: 048
     Dates: start: 20071112, end: 20071130
  2. CONTRACEPTIVE, UNSPECIFIED [Concomitant]

REACTIONS (4)
  - CRYING [None]
  - DEPRESSED MOOD [None]
  - DEPRESSION [None]
  - FATIGUE [None]
